FAERS Safety Report 15785858 (Version 1)
Quarter: 2019Q1

REPORT INFORMATION
  Report Type: Spontaneous
  Country: IT (occurrence: IT)
  Receive Date: 20190103
  Receipt Date: 20190103
  Transmission Date: 20190417
  Serious: Yes (Hospitalization, Other)
  Sender: FDA-Public Use
  Company Number: IT-GILEAD-2018-0382762

PATIENT
  Age: 21 Year
  Sex: Female

DRUGS (1)
  1. RANOLAZINE. [Suspect]
     Active Substance: RANOLAZINE
     Indication: PRODUCT USED FOR UNKNOWN INDICATION
     Dosage: 5000 MG, ONCE; 10-500 MG TABLETS
     Route: 048
     Dates: start: 20181014, end: 20181014

REACTIONS (4)
  - Toxicity to various agents [Unknown]
  - Confusional state [Unknown]
  - Diplopia [Unknown]
  - Vomiting [Unknown]

NARRATIVE: CASE EVENT DATE: 20181014
